FAERS Safety Report 24227806 (Version 2)
Quarter: 2024Q3

REPORT INFORMATION
  Report Type: Report from Study
  Country: US (occurrence: US)
  Receive Date: 20240820
  Receipt Date: 20240909
  Transmission Date: 20241016
  Serious: Yes (Hospitalization)
  Sender: SPRINGWORKS THERAPEUTIC
  Company Number: US-SPRINGWORKS THERAPEUTICS-SW-001895

PATIENT
  Age: 43 Year
  Sex: Female
  Weight: 89.342 kg

DRUGS (2)
  1. NIROGACESTAT [Suspect]
     Active Substance: NIROGACESTAT
     Indication: Product used for unknown indication
     Dosage: 150 MILLIGRAM, BID
     Route: 048
     Dates: start: 20240725
  2. NIROGACESTAT [Suspect]
     Active Substance: NIROGACESTAT
     Dosage: 1 TABLET DAILY
     Route: 048
     Dates: start: 20240827

REACTIONS (15)
  - Hypophagia [Unknown]
  - Dysarthria [Unknown]
  - Pyrexia [Unknown]
  - Mouth ulceration [Recovering/Resolving]
  - Skin burning sensation [Recovering/Resolving]
  - Swollen tongue [Recovering/Resolving]
  - Oropharyngeal discomfort [Recovering/Resolving]
  - Rash [Recovering/Resolving]
  - Headache [Recovering/Resolving]
  - Diarrhoea [Recovering/Resolving]
  - Abdominal pain upper [Recovering/Resolving]
  - Pharyngeal ulceration [Not Recovered/Not Resolved]
  - Tongue ulceration [Unknown]
  - Fatigue [Recovering/Resolving]
  - Intentional underdose [Unknown]

NARRATIVE: CASE EVENT DATE: 20240801
